FAERS Safety Report 7809781-8 (Version None)
Quarter: 2011Q4

REPORT INFORMATION
  Report Type: 
  Country: None (occurrence: None)
  Receive Date: 20111012
  Receipt Date: 20111004
  Transmission Date: 20120403
  Serious: Yes (Other)
  Sender: FDA-Public Use
  Company Number: FR-JNJFOC-20111003392

PATIENT

DRUGS (10)
  1. VINCRISTINE [Suspect]
     Indication: ACUTE LYMPHOCYTIC LEUKAEMIA
     Dosage: ADMINISTERED OVER 5 MINS ON DAY 1 AND 29
     Route: 042
  2. DEXAMETHASONE [Suspect]
     Route: 048
  3. DEXAMETHASONE [Suspect]
     Indication: ACUTE LYMPHOCYTIC LEUKAEMIA
     Route: 048
  4. DOXORUBICIN HCL [Suspect]
     Dosage: OVER 1 HOUR ON DAY 1
     Route: 042
  5. HYDROCORTISONE [Concomitant]
     Route: 065
  6. METHOTREXATE [Concomitant]
     Indication: PROPHYLAXIS
     Route: 037
  7. DOXORUBICIN HCL [Suspect]
     Indication: ACUTE LYMPHOCYTIC LEUKAEMIA
     Dosage: OVER 1 HOUR ON DAY 1-4  ON DAY 29
     Route: 042
  8. PREDNISONE [Concomitant]
     Indication: PRODUCT USED FOR UNKNOWN INDICATION
     Route: 048
  9. CYCLOPHOSPHAMIDE [Suspect]
     Indication: ACUTE LYMPHOCYTIC LEUKAEMIA
     Route: 065
  10. VINCRISTINE [Suspect]
     Dosage: DAY 1-4 CONTINOUS INFUSION (CI)
     Route: 042

REACTIONS (1)
  - CLOSTRIDIUM DIFFICILE COLITIS [None]
